FAERS Safety Report 8595891-7 (Version None)
Quarter: 2012Q3

REPORT INFORMATION
  Report Type: 
  Country: None (occurrence: None)
  Receive Date: 20120815
  Receipt Date: 19920601
  Transmission Date: 20120928
  Serious: Yes (Other)
  Sender: FDA-Public Use
  Company Number: US-ROCHE-1099902

PATIENT
  Age: 56 Year
  Sex: Female

DRUGS (1)
  1. ACTIVASE [Suspect]
     Indication: ACUTE MYOCARDIAL INFARCTION
     Dosage: ENTIRE DOSE OVER 90 MIN
     Route: 065
     Dates: start: 19920406

REACTIONS (4)
  - SUPRAVENTRICULAR TACHYCARDIA [None]
  - VENTRICULAR FIBRILLATION [None]
  - ATRIOVENTRICULAR BLOCK [None]
  - BLOOD CREATINE PHOSPHOKINASE MB INCREASED [None]
